FAERS Safety Report 10425678 (Version 1)
Quarter: 2014Q3

REPORT INFORMATION
  Report Type: Spontaneous
  Country: US (occurrence: US)
  Receive Date: 20140903
  Receipt Date: 20140903
  Transmission Date: 20150326
  Serious: Yes (Hospitalization)
  Sender: FDA-Public Use
  Company Number: US-UCBSA-2014010412

PATIENT
  Sex: Female

DRUGS (3)
  1. SEROQUEL [Interacting]
     Active Substance: QUETIAPINE FUMARATE
     Indication: SCHIZOPHRENIA
  2. KEPPRA [Suspect]
     Active Substance: LEVETIRACETAM
     Dosage: UNK, ONCE DAILY (QD)
     Route: 048
     Dates: start: 2007, end: 2008
  3. CYMBALTA [Interacting]
     Active Substance: DULOXETINE HYDROCHLORIDE
     Indication: DEPRESSION

REACTIONS (4)
  - Irritability [Unknown]
  - Aggression [Unknown]
  - Drug interaction [Recovered/Resolved]
  - Mania [Unknown]

NARRATIVE: CASE EVENT DATE: 2007
